FAERS Safety Report 19688398 (Version 1)
Quarter: 2021Q3

REPORT INFORMATION
  Report Type: Spontaneous
  Country: IT (occurrence: IT)
  Receive Date: 20210811
  Receipt Date: 20210811
  Transmission Date: 20211014
  Serious: Yes (Hospitalization, Other)
  Sender: FDA-Public Use
  Company Number: IT-ANIPHARMA-2021-IT-000146

PATIENT
  Age: 44 Year
  Sex: Female

DRUGS (1)
  1. FLECAINIDE ACETATE (NON?SPECIFIC) [Suspect]
     Active Substance: FLECAINIDE ACETATE
     Indication: PRODUCT USED FOR UNKNOWN INDICATION
     Dosage: 3 GRAMS
     Route: 048

REACTIONS (2)
  - Stress cardiomyopathy [Recovered/Resolved]
  - Intentional overdose [Recovered/Resolved]
